FAERS Safety Report 8240675-2 (Version None)
Quarter: 2012Q1

REPORT INFORMATION
  Report Type: 
  Country: None (occurrence: None)
  Receive Date: 20120328
  Receipt Date: 20120319
  Transmission Date: 20120608
  Serious: Yes (Hospitalization)
  Sender: FDA-Public Use
  Company Number: DE-FRI-1000028764

PATIENT
  Age: 43 Year
  Sex: Male

DRUGS (7)
  1. PANTOPRAZOLE [Concomitant]
  2. ROFLUMILAST [Suspect]
     Indication: CHRONIC OBSTRUCTIVE PULMONARY DISEASE
     Dates: start: 20111101, end: 20120208
  3. DIGOXIN [Concomitant]
  4. HEART MEDICATION (NOS) [Concomitant]
  5. SPIRIVA [Concomitant]
  6. BERODUAL [Concomitant]
  7. FUROSEMIDE [Concomitant]

REACTIONS (1)
  - PSYCHOTIC DISORDER [None]
